FAERS Safety Report 4948877-5 (Version None)
Quarter: 2006Q1

REPORT INFORMATION
  Report Type: 
  Country: None (occurrence: None)
  Receive Date: 20060316
  Receipt Date: 20060308
  Transmission Date: 20060701
  Serious: Yes (Death, Hospitalization, Other)
  Sender: FDA-Public Use
  Company Number: HQWYE266225NOV03

PATIENT
  Age: 60 Year
  Sex: Male
  Weight: 66.6 kg

DRUGS (1)
  1. MYLOTARG [Suspect]
     Indication: ACUTE MYELOID LEUKAEMIA
     Dosage: 15 MG 1X PER 1 DAY, INTRAVENOUS
     Route: 042
     Dates: start: 20031014, end: 20031014

REACTIONS (16)
  - BLOOD ALKALINE PHOSPHATASE INCREASED [None]
  - CHILLS [None]
  - CONDITION AGGRAVATED [None]
  - DISEASE PROGRESSION [None]
  - FLUID OVERLOAD [None]
  - HYPOTENSION [None]
  - INFUSION RELATED REACTION [None]
  - MULTI-ORGAN FAILURE [None]
  - OXYGEN SATURATION DECREASED [None]
  - PYREXIA [None]
  - RESPIRATORY FAILURE [None]
  - RHONCHI [None]
  - SEPTIC SHOCK [None]
  - TUMOUR LYSIS SYNDROME [None]
  - WEIGHT INCREASED [None]
  - WHEEZING [None]
